FAERS Safety Report 8071989-7 (Version None)
Quarter: 2012Q1

REPORT INFORMATION
  Report Type: 
  Country: None (occurrence: None)
  Receive Date: 20120126
  Receipt Date: 20120117
  Transmission Date: 20120608
  Serious: Yes (Other)
  Sender: FDA-Public Use
  Company Number: US-BAYER-2011-075118

PATIENT
  Age: 20 Year
  Sex: Female

DRUGS (3)
  1. LYRICA [Concomitant]
  2. KEPPRA [Concomitant]
  3. YAZ [Suspect]
     Indication: ORAL CONTRACEPTION

REACTIONS (4)
  - INJURY [None]
  - PAIN [None]
  - GALLBLADDER INJURY [None]
  - CHOLECYSTITIS CHRONIC [None]
